FAERS Safety Report 8999288 (Version 1)
Quarter: 2013Q1

REPORT INFORMATION
  Report Type: Spontaneous
  Country: US (occurrence: US)
  Receive Date: 20130103
  Receipt Date: 20130103
  Transmission Date: 20140127
  Serious: Yes (Hospitalization)
  Sender: FDA-Public Use
  Company Number: US-NOVOPROD-367840

PATIENT
  Age: 21 Year
  Sex: Female

DRUGS (7)
  1. LEVEMIR FLEXPEN [Suspect]
     Indication: TYPE 1 DIABETES MELLITUS
     Dosage: UNK
     Route: 058
     Dates: start: 201006
  2. APIDRA [Concomitant]
     Indication: TYPE 1 DIABETES MELLITUS
     Dosage: UNK
  3. LEVOXYL [Concomitant]
     Indication: HYPOTHYROIDISM
     Dosage: UNK
  4. SINGULAIR [Concomitant]
     Indication: ASTHMA
     Dosage: UNK
  5. SYMBICORT [Concomitant]
     Indication: ASTHMA
     Dosage: UNK
  6. ALBUTEROL                          /00139501/ [Concomitant]
     Indication: ASTHMA
     Dosage: UNK
  7. OMEPRAZOLE [Concomitant]
     Indication: GASTROOESOPHAGEAL REFLUX DISEASE
     Dosage: UNK

REACTIONS (1)
  - Sinusitis [Unknown]
